FAERS Safety Report 7509592-7 (Version None)
Quarter: 2011Q2

REPORT INFORMATION
  Report Type: 
  Country: None (occurrence: None)
  Receive Date: 20110527
  Receipt Date: 20110516
  Transmission Date: 20111010
  Serious: Yes (Other)
  Sender: FDA-Public Use
  Company Number: US-BAYER-201030312NA

PATIENT
  Age: 24 Year
  Sex: Female

DRUGS (1)
  1. YAZ [Suspect]
     Indication: CONTRACEPTION
     Dosage: UNK UNK, QD
     Route: 048
     Dates: start: 20070501, end: 20080101

REACTIONS (7)
  - BILIARY DYSKINESIA [None]
  - NAUSEA [None]
  - CHOLELITHIASIS [None]
  - BACK PAIN [None]
  - DYSKINESIA [None]
  - ABDOMINAL PAIN UPPER [None]
  - GALLBLADDER INJURY [None]
